FAERS Safety Report 14211464 (Version 1)
Quarter: 2017Q4

REPORT INFORMATION
  Report Type: Spontaneous
  Country: BR (occurrence: BR)
  Receive Date: 20171121
  Receipt Date: 20171121
  Transmission Date: 20180321
  Serious: Yes (Other)
  Sender: FDA-Public Use
  Company Number: BR-BAYER-2017-217900

PATIENT
  Sex: Female

DRUGS (2)
  1. YASMIN [Suspect]
     Active Substance: DROSPIRENONE\ETHINYL ESTRADIOL
     Indication: CONTRACEPTION
     Dosage: UNK
  2. PRISTIQ EXTENDED-RELEASE [Interacting]
     Active Substance: DESVENLAFAXINE SUCCINATE

REACTIONS (3)
  - Drug ineffective [None]
  - Ectopic pregnancy under hormonal contraception [None]
  - Drug interaction [None]
